FAERS Safety Report 5106017-6 (Version None)
Quarter: 2006Q3

REPORT INFORMATION
  Report Type: 
  Country: None (occurrence: None)
  Receive Date: 20060915
  Receipt Date: 20060907
  Transmission Date: 20061208
  Serious: Yes (Hospitalization)
  Sender: FDA-Public Use
  Company Number: FR-ABBOTT-06P-056-0343550-00

PATIENT
  Age: 77 Year
  Sex: Male

DRUGS (4)
  1. NAXY TABLETS [Suspect]
     Indication: LUNG DISORDER
     Route: 048
     Dates: start: 20060807, end: 20060811
  2. LOSARTAN POTASSIUM [Suspect]
     Indication: DRUG USE FOR UNKNOWN INDICATION
  3. AMLODIPINE BESYLATE [Suspect]
     Indication: DRUG USE FOR UNKNOWN INDICATION
  4. ASASANTINE LP [Concomitant]
     Indication: DRUG USE FOR UNKNOWN INDICATION

REACTIONS (3)
  - ANXIETY [None]
  - HALLUCINATION [None]
  - NIGHTMARE [None]
